FAERS Safety Report 6515297-1 (Version None)
Quarter: 2009Q4

REPORT INFORMATION
  Report Type: 
  Country: None (occurrence: None)
  Receive Date: 20091223
  Receipt Date: 20091215
  Transmission Date: 20100525
  Serious: Yes (Hospitalization)
  Sender: FDA-Public Use
  Company Number: AT-JNJFOC-20090405456

PATIENT
  Sex: Female
  Weight: 69 kg

DRUGS (6)
  1. REMICADE [Suspect]
     Indication: CROHN'S DISEASE
     Route: 042
  2. HUMIRA [Concomitant]
  3. HUMIRA [Concomitant]
     Indication: CROHN'S DISEASE
  4. XEFO [Concomitant]
  5. ALL OTHER THERAPEUTIC PRODUCTS [Concomitant]
     Indication: CROHN'S DISEASE
  6. AKTIFERRIN [Concomitant]
     Indication: ANAEMIA

REACTIONS (3)
  - ANAL ABSCESS [None]
  - CROHN'S DISEASE [None]
  - FISTULA [None]
